FAERS Safety Report 6287041-7 (Version None)
Quarter: 2009Q3

REPORT INFORMATION
  Report Type: 
  Country: None (occurrence: None)
  Receive Date: 20090727
  Receipt Date: 20090727
  Transmission Date: 20100115
  Serious: No
  Sender: FDA-Public Use
  Company Number: None

PATIENT
  Sex: Female
  Weight: 86.1834 kg

DRUGS (1)
  1. CYMBALTA [Suspect]
     Indication: PAIN
     Dosage: ONE DAILY 3@MG APPROX. 1 YEAR

REACTIONS (6)
  - JAUNDICE [None]
  - MUSCULAR WEAKNESS [None]
  - PRURITUS [None]
  - SWELLING [None]
  - SYNCOPE [None]
  - VOMITING [None]
